FAERS Safety Report 23720298 (Version 1)
Quarter: 2024Q2

REPORT INFORMATION
  Report Type: Report from Study
  Country: BR (occurrence: BR)
  Receive Date: 20240408
  Receipt Date: 20240408
  Transmission Date: 20240716
  Serious: Yes (Other)
  Sender: FDA-Public Use
  Company Number: BR-ABBVIE-5708883

PATIENT
  Sex: Female
  Weight: 97 kg

DRUGS (2)
  1. RINVOQ [Suspect]
     Active Substance: UPADACITINIB
     Indication: Rheumatoid arthritis
     Dosage: 1 TABLET
     Route: 048
     Dates: start: 20240301, end: 20240312
  2. RINVOQ [Suspect]
     Active Substance: UPADACITINIB
     Indication: Rheumatoid arthritis
     Dosage: 1 TABLET?FIRST ADMIN DATE- 2024
     Route: 048

REACTIONS (6)
  - Spinal cord compression [Recovering/Resolving]
  - Paraesthesia [Not Recovered/Not Resolved]
  - Radiculopathy [Recovering/Resolving]
  - Asthenia [Recovering/Resolving]
  - Therapy cessation [Unknown]
  - Joint stiffness [Unknown]

NARRATIVE: CASE EVENT DATE: 20240101
